FAERS Safety Report 7358506-1 (Version None)
Quarter: 2011Q1

REPORT INFORMATION
  Report Type: 
  Country: None (occurrence: None)
  Receive Date: 20110317
  Receipt Date: 20110309
  Transmission Date: 20110831
  Serious: Yes (Hospitalization)
  Sender: FDA-Public Use
  Company Number: JP-ASTRAZENECA-2009SE29365

PATIENT
  Age: 55 Year
  Sex: Male

DRUGS (5)
  1. REBAMIPIDE [Concomitant]
     Route: 048
  2. LOXOPROFEN [Concomitant]
     Route: 048
  3. IRESSA [Suspect]
     Indication: NON-SMALL CELL LUNG CANCER
     Route: 048
     Dates: start: 20091001
  4. OXYCODONE HCL [Concomitant]
     Route: 048
  5. PROCHLORPERAZINE MALEATE [Concomitant]
     Route: 048

REACTIONS (1)
  - RADIATION PNEUMONITIS [None]
